FAERS Safety Report 8206400-6 (Version None)
Quarter: 2012Q1

REPORT INFORMATION
  Report Type: 
  Country: None (occurrence: None)
  Receive Date: 20120313
  Receipt Date: 20120307
  Transmission Date: 20120608
  Serious: Yes (Hospitalization)
  Sender: FDA-Public Use
  Company Number: PHEH2012US000723

PATIENT
  Sex: Female
  Weight: 71.202 kg

DRUGS (4)
  1. FOLIC ACID [Concomitant]
     Indication: SICKLE CELL ANAEMIA
     Route: 048
  2. EXJADE [Suspect]
     Indication: SICKLE CELL ANAEMIA
     Dosage: 1500 MG DAILY
     Route: 048
     Dates: start: 20070501
  3. HYDROCODONE BITARTRATE [Concomitant]
     Indication: PAIN
  4. FENTANYL [Concomitant]
     Indication: PAIN

REACTIONS (1)
  - SICKLE CELL ANAEMIA WITH CRISIS [None]
